FAERS Safety Report 6269152-5 (Version None)
Quarter: 2009Q3

REPORT INFORMATION
  Report Type: 
  Country: None (occurrence: None)
  Receive Date: 20090713
  Receipt Date: 20090630
  Transmission Date: 20100115
  Serious: Yes (Hospitalization)
  Sender: FDA-Public Use
  Company Number: FR-1169709

PATIENT
  Age: 77 Year
  Sex: Female

DRUGS (3)
  1. IOPIDINE           (APRACIONIDE HYDROCHLORIDE) 1% OPHTHALMIC SOLUTION [Suspect]
     Route: 047
     Dates: start: 20080527, end: 20080613
  2. ISOPTIN [Concomitant]
  3. ZOCOR [Concomitant]

REACTIONS (1)
  - CIRCULATORY COLLAPSE [None]
